FAERS Safety Report 7536649-7 (Version None)
Quarter: 2011Q2

REPORT INFORMATION
  Report Type: 
  Country: None (occurrence: None)
  Receive Date: 20110609
  Receipt Date: 20110524
  Transmission Date: 20111010
  Serious: Yes (Hospitalization)
  Sender: FDA-Public Use
  Company Number: A0788563A

PATIENT
  Age: 61 Year
  Sex: Female

DRUGS (17)
  1. GLUCOPHAGE [Concomitant]
  2. TRIAMTEREN + HYDROCHLOROTHIAZIDE [Concomitant]
  3. LOPRESSOR [Concomitant]
  4. AVANDIA [Suspect]
     Dosage: 8MG PER DAY
     Route: 065
     Dates: start: 20030923, end: 20061213
  5. LOTREL [Concomitant]
  6. ASPIRIN [Concomitant]
  7. PHENERGAN HCL [Concomitant]
  8. ALLEGRA [Concomitant]
  9. PREVACID [Concomitant]
  10. GLIPIZIDE [Concomitant]
  11. ZOCOR [Concomitant]
  12. SYNTHROID [Concomitant]
  13. STARLIX [Concomitant]
  14. ROSIGLITAZONE MALEATE [Suspect]
     Indication: DIABETES MELLITUS
     Route: 048
     Dates: start: 20041211, end: 20061101
  15. TRAZODONE HCL [Concomitant]
  16. SKELAXIN [Concomitant]
  17. VICODIN [Concomitant]

REACTIONS (3)
  - MYOCARDIAL ISCHAEMIA [None]
  - CORONARY ARTERY DISEASE [None]
  - MYOCARDIAL INFARCTION [None]
